FAERS Safety Report 6129835-4 (Version None)
Quarter: 2009Q1

REPORT INFORMATION
  Report Type: 
  Country: None (occurrence: None)
  Receive Date: 20090324
  Receipt Date: 20090316
  Transmission Date: 20090719
  Serious: Yes (Other)
  Sender: FDA-Public Use
  Company Number: PHHY2009IE09579

PATIENT
  Sex: Female

DRUGS (1)
  1. NEORAL [Suspect]
     Indication: ECZEMA
     Dosage: 3.5 MG, BID
     Route: 048

REACTIONS (2)
  - INCORRECT DOSE ADMINISTERED [None]
  - OVERDOSE [None]
